FAERS Safety Report 24235902 (Version 1)
Quarter: 2024Q3

REPORT INFORMATION
  Report Type: Spontaneous
  Country: US (occurrence: US)
  Receive Date: 20240822
  Receipt Date: 20240822
  Transmission Date: 20241017
  Serious: No
  Sender: AMGEN
  Company Number: US-AMGEN-USASP2024166201

PATIENT
  Age: 66 Year
  Sex: Female

DRUGS (2)
  1. TEPEZZA [Suspect]
     Active Substance: TEPROTUMUMAB-TRBW
     Indication: Endocrine ophthalmopathy
     Dosage: UNK UNK, Q3WK (FIRST INFUSION)
     Route: 042
     Dates: start: 2024
  2. TEPEZZA [Suspect]
     Active Substance: TEPROTUMUMAB-TRBW
     Dosage: UNK UNK, Q3WK (FIFTH INFUSION)
     Route: 042
     Dates: start: 20240808

REACTIONS (3)
  - Tinnitus [Unknown]
  - Headache [Unknown]
  - Ear discomfort [Unknown]
